FAERS Safety Report 10575478 (Version 3)
Quarter: 2015Q3

REPORT INFORMATION
  Report Type: Spontaneous
  Country: US (occurrence: US)
  Receive Date: 20141111
  Receipt Date: 20150903
  Transmission Date: 20151125
  Serious: Yes (Hospitalization, Other)
  Sender: FDA-Public Use
  Company Number: US-AUROBINDO-AUR-APL-2014-11762

PATIENT
  Age: 50 Year
  Sex: Male

DRUGS (2)
  1. TRIMETHOPRIM+SULFAMETHOXAZOLE [Suspect]
     Active Substance: SULFAMETHOXAZOLE\TRIMETHOPRIM
     Indication: ARTHRITIS
     Dosage: UNK
     Route: 065
  2. TRIMETHOPRIM+SULFAMETHOXAZOLE [Suspect]
     Active Substance: SULFAMETHOXAZOLE\TRIMETHOPRIM
     Indication: PROPHYLAXIS

REACTIONS (22)
  - Pulmonary toxicity [Recovering/Resolving]
  - Lung infiltration [Recovering/Resolving]
  - Gouty arthritis [Recovering/Resolving]
  - Epigastric discomfort [Recovering/Resolving]
  - Leukocytosis [Recovering/Resolving]
  - Condition aggravated [Recovering/Resolving]
  - Rales [Recovering/Resolving]
  - C-reactive protein increased [Recovering/Resolving]
  - Prolonged expiration [Recovering/Resolving]
  - Neutrophilia [Recovering/Resolving]
  - Granulocytosis [Recovering/Resolving]
  - Swelling [Recovering/Resolving]
  - Red blood cell sedimentation rate increased [Recovering/Resolving]
  - Pneumomediastinum [Recovering/Resolving]
  - Blood creatine phosphokinase increased [Recovering/Resolving]
  - Dyspnoea exertional [Recovering/Resolving]
  - Chest pain [Recovering/Resolving]
  - Respiratory distress [Recovering/Resolving]
  - Hypoxia [Recovering/Resolving]
  - Sinus tachycardia [Recovering/Resolving]
  - Pleuritic pain [Recovering/Resolving]
  - Organising pneumonia [Recovering/Resolving]
